FAERS Safety Report 23146147 (Version 1)
Quarter: 2023Q4

REPORT INFORMATION
  Report Type: Spontaneous
  Country: KR (occurrence: KR)
  Receive Date: 20231104
  Receipt Date: 20231104
  Transmission Date: 20240109
  Serious: Yes (Hospitalization, Other)
  Sender: FDA-Public Use
  Company Number: KR-EPICPHARMA-KR-2023EPCLIT01571

PATIENT
  Age: 61 Year
  Sex: Female

DRUGS (16)
  1. AMIODARONE HYDROCHLORIDE [Suspect]
     Active Substance: AMIODARONE HYDROCHLORIDE
     Indication: Myocardial ischaemia
     Route: 065
  2. AMIODARONE HYDROCHLORIDE [Suspect]
     Active Substance: AMIODARONE HYDROCHLORIDE
     Indication: Atrial fibrillation
     Route: 065
  3. DILTIAZEM [Suspect]
     Active Substance: DILTIAZEM
     Indication: Myocardial ischaemia
     Route: 065
  4. DILTIAZEM [Suspect]
     Active Substance: DILTIAZEM
     Indication: Atrial fibrillation
  5. PITAVASTATIN [Suspect]
     Active Substance: PITAVASTATIN
     Indication: Myocardial ischaemia
     Route: 065
  6. PITAVASTATIN [Suspect]
     Active Substance: PITAVASTATIN
     Indication: Atrial fibrillation
  7. CLOPIDOGREL [Concomitant]
     Active Substance: CLOPIDOGREL BISULFATE
     Indication: Myocardial ischaemia
     Route: 065
  8. CLOPIDOGREL [Concomitant]
     Active Substance: CLOPIDOGREL BISULFATE
     Indication: Atrial fibrillation
  9. VALSARTAN [Concomitant]
     Active Substance: VALSARTAN
     Indication: Myocardial ischaemia
     Route: 065
  10. VALSARTAN [Concomitant]
     Active Substance: VALSARTAN
     Indication: Atrial fibrillation
  11. RIVAROXABAN [Concomitant]
     Active Substance: RIVAROXABAN
     Indication: Myocardial ischaemia
     Route: 065
  12. RIVAROXABAN [Concomitant]
     Active Substance: RIVAROXABAN
     Indication: Atrial fibrillation
  13. NICORANDIL [Concomitant]
     Active Substance: NICORANDIL
     Indication: Myocardial ischaemia
     Route: 065
  14. NICORANDIL [Concomitant]
     Active Substance: NICORANDIL
     Indication: Atrial fibrillation
  15. FUROSEMIDE [Concomitant]
     Active Substance: FUROSEMIDE
     Indication: Myocardial ischaemia
     Route: 065
  16. FUROSEMIDE [Concomitant]
     Active Substance: FUROSEMIDE
     Indication: Atrial fibrillation

REACTIONS (7)
  - Cornea verticillata [Recovered/Resolved]
  - Drug-induced liver injury [Recovered/Resolved]
  - Pulmonary toxicity [Recovered/Resolved]
  - Hyperthyroidism [Recovered/Resolved]
  - Toxicity to various agents [Recovered/Resolved]
  - Drug interaction [Unknown]
  - Product use in unapproved indication [Unknown]
